FAERS Safety Report 5092885-3 (Version None)
Quarter: 2006Q3

REPORT INFORMATION
  Report Type: 
  Country: None (occurrence: None)
  Receive Date: 20060828
  Receipt Date: 20060815
  Transmission Date: 20061208
  Serious: Yes (Hospitalization)
  Sender: FDA-Public Use
  Company Number: S05-USA-05038-02

PATIENT
  Sex: Male
  Weight: 4.03 kg

DRUGS (3)
  1. LEXAPRO [Suspect]
     Dosage: 20 MG QD TRANSPLACENTAL
     Route: 064
     Dates: start: 20051020
  2. LEXAPRO [Suspect]
     Dosage: 10  MG QD TRANSPLACENTAL
     Route: 064
     Dates: start: 20060329, end: 20060101
  3. LEXAPRO [Suspect]
     Dosage: 10 MG QD BF
     Route: 050
     Dates: start: 20060101

REACTIONS (4)
  - CYANOSIS [None]
  - DRUG EXPOSURE DURING PREGNANCY [None]
  - DRUG EXPOSURE VIA BREAST MILK [None]
  - NEONATAL RESPIRATORY ARREST [None]
